FAERS Safety Report 9372324 (Version 1)
Quarter: 2013Q2

REPORT INFORMATION
  Report Type: Report from Study
  Country: US (occurrence: US)
  Receive Date: 20130627
  Receipt Date: 20130627
  Transmission Date: 20140414
  Serious: Yes (Death)
  Sender: FDA-Public Use
  Company Number: US-MYLANLABS-2012S1020809

PATIENT
  Age: 29 Year
  Sex: Female
  Weight: 99.79 kg

DRUGS (6)
  1. CLOZAPINE TABLETS [Suspect]
     Indication: PSYCHOTIC DISORDER
     Dates: end: 20120823
  2. ARTANE [Concomitant]
  3. CLONIDINE [Concomitant]
  4. DDAVP [Concomitant]
  5. LITHIUM CARBONATE [Concomitant]
     Dosage: 5 TIMES DAILY
  6. GABAPENTIN [Concomitant]

REACTIONS (1)
  - Death [Fatal]
